FAERS Safety Report 6652879-0 (Version None)
Quarter: 2010Q1

REPORT INFORMATION
  Report Type: 
  Country: None (occurrence: None)
  Receive Date: 20100326
  Receipt Date: 20100322
  Transmission Date: 20100710
  Serious: Yes (Other)
  Sender: FDA-Public Use
  Company Number: NO-SANOFI-AVENTIS-2010SA016608

PATIENT
  Age: 50 Year
  Sex: Female

DRUGS (3)
  1. LANTUS [Suspect]
     Dosage: 44-50 IU PER DAY
     Dates: start: 20050301, end: 20100302
  2. PROGYNOVA [Concomitant]
     Route: 048
     Dates: start: 20080401
  3. NOVORAPID [Concomitant]
     Dosage: 0-4 IU BEFORE MEALS
     Dates: start: 20010101

REACTIONS (1)
  - MELANOCYTIC NAEVUS [None]
